FAERS Safety Report 6967293-8 (Version None)
Quarter: 2010Q3

REPORT INFORMATION
  Report Type: 
  Country: None (occurrence: None)
  Receive Date: 20100907
  Receipt Date: 20100831
  Transmission Date: 20110219
  Serious: Yes (Other)
  Sender: FDA-Public Use
  Company Number: US-BAYER-201015417NA

PATIENT
  Age: 36 Year
  Sex: Female
  Weight: 82 kg

DRUGS (6)
  1. YASMIN [Suspect]
     Indication: PREMENSTRUAL SYNDROME
     Route: 048
     Dates: start: 20020601, end: 20080501
  2. ANTIBIOTICS [Concomitant]
  3. ZYRTEC [Concomitant]
  4. PEPCID [Concomitant]
  5. ACETAMINOPHEN [Concomitant]
  6. PREDNISONE [Concomitant]

REACTIONS (6)
  - ABDOMINAL PAIN UPPER [None]
  - CHOLECYSTITIS CHRONIC [None]
  - MENTAL DISORDER [None]
  - MURPHY'S SIGN POSITIVE [None]
  - NAUSEA [None]
  - PREGNANCY ON ORAL CONTRACEPTIVE [None]
